FAERS Safety Report 9338193 (Version 6)
Quarter: 2013Q4

REPORT INFORMATION
  Report Type: Spontaneous
  Country: US (occurrence: US)
  Receive Date: 20130610
  Receipt Date: 20131021
  Transmission Date: 20140711
  Serious: No
  Sender: FDA-Public Use
  Company Number: US-009507513-1306USA002377

PATIENT
  Sex: Male

DRUGS (13)
  1. VICTRELIS [Suspect]
     Indication: CHRONIC HEPATITIS C
     Dosage: UNK
     Route: 065
  2. PEGASYS [Suspect]
     Indication: CHRONIC HEPATITIS C
     Dosage: PROCLICK, 180 MICROGRAM 1 IN 1 WEEK
     Route: 058
     Dates: start: 20130503
  3. PEGASYS [Suspect]
     Dosage: PROCLICK, 135 MICROGRAM 1 IN 1 WEEK
     Route: 058
  4. RIBAVIRIN (WARRICK) [Suspect]
     Indication: CHRONIC HEPATITIS C
     Dosage: 1200 MG, DAILY DIVIDED DOSES
     Route: 065
     Dates: start: 20130503
  5. RIBAVIRIN (WARRICK) [Suspect]
     Dosage: 600 MG, QD
     Route: 065
  6. RIBASPHERE [Suspect]
     Indication: CHRONIC HEPATITIS C
     Dosage: 600 MG (DAILY DIVIDED DOSE)
     Route: 065
  7. BENICAR [Concomitant]
  8. BYSTOLIC [Concomitant]
     Dosage: UNK
  9. HYDROCHLOROTHIAZIDE [Concomitant]
  10. AMLODIPINE [Concomitant]
  11. TRAZODONE HYDROCHLORIDE [Concomitant]
  12. NEUPOGEN [Concomitant]
  13. PROCRIT [Concomitant]

REACTIONS (19)
  - Night sweats [Unknown]
  - Weight increased [Unknown]
  - Bone marrow failure [Unknown]
  - Platelet count increased [Unknown]
  - Pollakiuria [Unknown]
  - Hypotension [Recovering/Resolving]
  - White blood cell count decreased [Not Recovered/Not Resolved]
  - Pruritus [Unknown]
  - Weight decreased [Not Recovered/Not Resolved]
  - Dizziness [Unknown]
  - Nausea [Unknown]
  - Dry skin [Unknown]
  - Decreased appetite [Not Recovered/Not Resolved]
  - Fatigue [Not Recovered/Not Resolved]
  - Rash [Unknown]
  - Anaemia [Unknown]
  - Red blood cell count decreased [Unknown]
  - Insomnia [Unknown]
  - Platelet count decreased [Unknown]
